FAERS Safety Report 9434901 (Version 2)
Quarter: 2014Q1

REPORT INFORMATION
  Report Type: Spontaneous
  Country: US (occurrence: US)
  Receive Date: 20130801
  Receipt Date: 20140319
  Transmission Date: 20141002
  Serious: Yes (Life-Threatening, Hospitalization, Other)
  Sender: FDA-Public Use
  Company Number: US-009507513-1307USA017143

PATIENT
  Sex: Female
  Weight: 56.69 kg

DRUGS (9)
  1. NUVARING [Suspect]
     Indication: HORMONE THERAPY
     Dosage: UNK
     Route: 067
     Dates: start: 20051111, end: 200603
  2. NUVARING [Suspect]
     Indication: MIGRAINE
  3. CALCIUM (UNSPECIFIED) [Concomitant]
     Dosage: UNK
     Dates: start: 1999
  4. VITAMINS (UNSPECIFIED) [Concomitant]
     Dosage: UNK
     Dates: start: 1999
  5. OMEGA-3 MARINE TRIGLYCERIDES [Concomitant]
     Dosage: UNK
     Dates: start: 1999
  6. ASPIRIN [Concomitant]
     Indication: CARDIOVASCULAR EVENT PROPHYLAXIS
     Dosage: 81 MG, UNK
     Dates: start: 1994
  7. IMITREX (SUMATRIPTAN) [Concomitant]
     Dosage: UNK
     Dates: start: 1988
  8. TOPAMAX [Concomitant]
     Dosage: UNK
     Dates: start: 1988
  9. MAXALT [Concomitant]
     Dosage: UNK
     Dates: start: 1988

REACTIONS (18)
  - Mammoplasty [Unknown]
  - Pulmonary embolism [Recovered/Resolved]
  - Coagulopathy [Unknown]
  - Off label use [Unknown]
  - Chest pain [Not Recovered/Not Resolved]
  - Gastrooesophageal reflux disease [Not Recovered/Not Resolved]
  - Nephrolithiasis [Unknown]
  - Tendon injury [Unknown]
  - Nephrolithiasis [Unknown]
  - Gastrointestinal disorder [Unknown]
  - Nervous system disorder [Unknown]
  - Fear of death [Not Recovered/Not Resolved]
  - Anxiety [Not Recovered/Not Resolved]
  - Hepatic cyst [Unknown]
  - Intervertebral disc protrusion [Unknown]
  - Sinus operation [Unknown]
  - Sinusitis [Unknown]
  - Granuloma [Unknown]
